FAERS Safety Report 7883768-1 (Version None)
Quarter: 2011Q4

REPORT INFORMATION
  Report Type: 
  Country: None (occurrence: None)
  Receive Date: 20111102
  Receipt Date: 20111026
  Transmission Date: 20120403
  Serious: Yes (Other)
  Sender: FDA-Public Use
  Company Number: US-SANOFI-AVENTIS-2011SA071045

PATIENT
  Sex: Female

DRUGS (4)
  1. FEXOFENADINE HCL [Suspect]
     Route: 048
     Dates: start: 20111001
  2. FEXOFENADINE HCL [Suspect]
     Indication: ASTHMA
     Route: 048
  3. FEXOFENADINE HCL [Suspect]
     Route: 048
  4. FEXOFENADINE HCL [Suspect]
     Route: 048
     Dates: start: 20111001

REACTIONS (2)
  - PRODUCT SUBSTITUTION ISSUE [None]
  - STENT PLACEMENT [None]
